FAERS Safety Report 25617091 (Version 1)
Quarter: 2025Q3

REPORT INFORMATION
  Report Type: Spontaneous
  Country: US (occurrence: None)
  Receive Date: 20250728
  Receipt Date: 20250728
  Transmission Date: 20251020
  Serious: Yes (Other)
  Sender: FDA-CTU
  Company Number: None

PATIENT
  Age: 57 Year
  Sex: Female
  Weight: 62.1 kg

DRUGS (8)
  1. RIZATRIPTAN [Suspect]
     Active Substance: RIZATRIPTAN
     Indication: Migraine
     Dates: start: 20210609, end: 20250526
  2. Hbp [Concomitant]
  3. WEGOVY [Concomitant]
     Active Substance: SEMAGLUTIDE
  4. high cholesterol [Concomitant]
  5. VITAMIN D [Concomitant]
     Active Substance: VITAMIN D NOS
  6. POTASSIUM [Concomitant]
     Active Substance: POTASSIUM
  7. acidopholous [Concomitant]
  8. htcz [Concomitant]

REACTIONS (1)
  - Cerebrovascular accident [None]

NARRATIVE: CASE EVENT DATE: 20250605
